FAERS Safety Report 8507990-6 (Version None)
Quarter: 2012Q3

REPORT INFORMATION
  Report Type: 
  Country: None (occurrence: None)
  Receive Date: 20120709
  Receipt Date: 20120709
  Transmission Date: 20120928
  Serious: No
  Sender: FDA-Public Use
  Company Number: None

PATIENT

DRUGS (2)
  1. ZANTAC [Suspect]
     Dosage: ORAL
     Route: 048
  2. ZANTAC [Suspect]
     Dosage: TABLET ORAL 150 MG
     Route: 048

REACTIONS (2)
  - MEDICATION ERROR [None]
  - INTERCEPTED DRUG DISPENSING ERROR [None]
